FAERS Safety Report 9867180 (Version 1)
Quarter: 2014Q1

REPORT INFORMATION
  Report Type: Spontaneous
  Country: US (occurrence: None)
  Receive Date: 20140203
  Receipt Date: 20140203
  Transmission Date: 20141002
  Serious: Yes (Hospitalization)
  Sender: FDA-Public Use
  Company Number: None

PATIENT
  Age: 46 Year
  Sex: Female
  Weight: 71.8 kg

DRUGS (9)
  1. 5-FU [Suspect]
     Indication: COLON CANCER
     Dosage: CYCLE 1
     Route: 042
     Dates: start: 20140115
  2. OXALIPLATIN [Suspect]
  3. LEUCOVORIN [Suspect]
  4. CALCIUM GLUCONATE [Concomitant]
  5. DEX [Concomitant]
  6. BENADRYL [Concomitant]
  7. FAMOTIDINE [Concomitant]
  8. PALONOSETRON [Concomitant]
  9. FOSAPREPITANT DIMEGLUMINE [Concomitant]

REACTIONS (3)
  - Nausea [None]
  - Vomiting [None]
  - Dehydration [None]
